FAERS Safety Report 8201236-4 (Version None)
Quarter: 2012Q1

REPORT INFORMATION
  Report Type: 
  Country: None (occurrence: None)
  Receive Date: 20120312
  Receipt Date: 20120301
  Transmission Date: 20120608
  Serious: Yes (Other)
  Sender: FDA-Public Use
  Company Number: DE-SANOFI-AVENTIS-2012SA016101

PATIENT
  Age: 62 Year
  Sex: Male

DRUGS (6)
  1. DOCETAXEL [Suspect]
     Route: 042
  2. SODIUM CHLORIDE [Concomitant]
     Dosage: 30 MIN BEFORE THERAPY
  3. ALL OTHER THERAPEUTIC PRODUCTS [Concomitant]
  4. GLUCOCORTICOSTEROIDS [Concomitant]
     Dosage: 12 AND 6 H BEFORE THERAPY
     Route: 048
  5. DOCETAXEL [Suspect]
     Indication: METASTASIS
     Route: 042
  6. ANTIHISTAMINES [Concomitant]
     Route: 042

REACTIONS (3)
  - HYPERTENSIVE CRISIS [None]
  - DYSPNOEA [None]
  - FLUSHING [None]
